FAERS Safety Report 9913258 (Version 1)
Quarter: 2014Q1

REPORT INFORMATION
  Report Type: Spontaneous
  Country: US (occurrence: None)
  Receive Date: 20140218
  Receipt Date: 20140218
  Transmission Date: 20141002
  Serious: No
  Sender: FDA-Public Use
  Company Number: None

PATIENT
  Age: 2 Year
  Sex: Male
  Weight: 13 kg

DRUGS (2)
  1. TPN [Suspect]
  2. CURLIN PUMPS [Concomitant]

REACTIONS (3)
  - Circumstance or information capable of leading to medication error [None]
  - Device physical property issue [None]
  - Product quality issue [None]
